FAERS Safety Report 4985749-4 (Version None)
Quarter: 2006Q2

REPORT INFORMATION
  Report Type: 
  Country: None (occurrence: None)
  Receive Date: 20060421
  Receipt Date: 20060412
  Transmission Date: 20061013
  Serious: Yes (Hospitalization)
  Sender: FDA-Public Use
  Company Number: 2006051298

PATIENT
  Age: 59 Year
  Sex: Male

DRUGS (7)
  1. SPIRONOLACTONE [Suspect]
     Indication: PULMONARY HYPERTENSION
     Dosage: 25 MG (25 MG, DAILY), ORAL
     Route: 048
     Dates: start: 20040101, end: 20050101
  2. TRACLEER [Suspect]
     Indication: PULMONARY HYPERTENSION
     Dosage: 125 MG (DAILY), ORAL
     Route: 048
     Dates: start: 20050101, end: 20050114
  3. COZAAR [Suspect]
     Indication: PULMONARY HYPERTENSION
     Dosage: 80 MG (DAILY), ORAL
     Route: 048
     Dates: start: 20040101, end: 20050101
  4. WARFARIN SODIUM [Concomitant]
  5. MIDAMOR [Concomitant]
  6. FUROSEMIDE [Concomitant]
  7. EMCONCOR CHF                        (BISOPROLOL FUMARATE) [Concomitant]

REACTIONS (5)
  - BLOOD ALKALINE PHOSPHATASE INCREASED [None]
  - CARDIAC FAILURE [None]
  - GAMMA-GLUTAMYLTRANSFERASE INCREASED [None]
  - HAEMOPTYSIS [None]
  - PNEUMONIA [None]
